FAERS Safety Report 17050526 (Version 2)
Quarter: 2019Q4

REPORT INFORMATION
  Report Type: Not Available
  Country: US (occurrence: US)
  Receive Date: 20191119
  Receipt Date: 20191210
  Transmission Date: 20200122
  Serious: Yes (Hospitalization)
  Sender: FDA-Public Use
  Company Number: US-NEUROCRINE BIOSCIENCES INC.-2019NBI03388

PATIENT
  Sex: Male

DRUGS (24)
  1. OLANZAPINE. [Concomitant]
     Active Substance: OLANZAPINE
     Indication: AFFECTIVE DISORDER
  2. LEXAPRO [Concomitant]
     Active Substance: ESCITALOPRAM OXALATE
     Indication: AFFECTIVE DISORDER
  3. HUMIRA [Concomitant]
     Active Substance: ADALIMUMAB
  4. METOPROLOL. [Concomitant]
     Active Substance: METOPROLOL
  5. GLIPIZIDE. [Concomitant]
     Active Substance: GLIPIZIDE
  6. DOXAZOSIN [Concomitant]
     Active Substance: DOXAZOSIN MESYLATE
  7. TAB-A-VITE [Concomitant]
  8. LISINOPRIL. [Concomitant]
     Active Substance: LISINOPRIL
  9. LEXAPRO [Concomitant]
     Active Substance: ESCITALOPRAM OXALATE
     Indication: AGITATION
  10. VASCEPA [Concomitant]
     Active Substance: ICOSAPENT ETHYL
  11. INGREZZA [Suspect]
     Active Substance: VALBENAZINE
     Indication: TARDIVE DYSKINESIA
     Route: 048
     Dates: start: 20190618, end: 201910
  12. OLANZAPINE. [Concomitant]
     Active Substance: OLANZAPINE
     Indication: AGITATION
     Dosage: 10 MG IN THE MORNING AND 15 MG AT BEDTIME
  13. WELLBUTRIN [Concomitant]
     Active Substance: BUPROPION HYDROCHLORIDE
     Indication: DEPRESSION
  14. ASPIRIN. [Concomitant]
     Active Substance: ASPIRIN
  15. FENOFIBRATE. [Concomitant]
     Active Substance: FENOFIBRATE
  16. FIBROLAX [Concomitant]
  17. RANITIDINE. [Concomitant]
     Active Substance: RANITIDINE
  18. TRIAMTERENE HCTZ [Concomitant]
     Active Substance: HYDROCHLOROTHIAZIDE\TRIAMTERENE
  19. MAPAP [Concomitant]
     Active Substance: ACETAMINOPHEN
  20. SIMVASTATIN. [Concomitant]
     Active Substance: SIMVASTATIN
  21. VITAMIN D3 [Concomitant]
     Active Substance: CHOLECALCIFEROL
  22. LEVOCETIRIZINE [Concomitant]
     Active Substance: LEVOCETIRIZINE
  23. MELATONIN [Concomitant]
     Active Substance: MELATONIN
     Indication: INSOMNIA
  24. MULTIVITAMIN [Concomitant]
     Active Substance: VITAMINS

REACTIONS (2)
  - Drug ineffective [None]
  - Immune thrombocytopenic purpura [Recovered/Resolved]

NARRATIVE: CASE EVENT DATE: 2019
